FAERS Safety Report 24563851 (Version 1)
Quarter: 2024Q4

REPORT INFORMATION
  Report Type: Spontaneous
  Country: ZA (occurrence: ZA)
  Receive Date: 20241030
  Receipt Date: 20241030
  Transmission Date: 20250114
  Serious: Yes (Other)
  Sender: MACLEODS
  Company Number: ZA-MACLEODS PHARMA-MAC2024050053

PATIENT

DRUGS (12)
  1. HYDROCHLOROTHIAZIDE\VALSARTAN [Suspect]
     Active Substance: HYDROCHLOROTHIAZIDE\VALSARTAN
     Indication: Hypertension
     Route: 048
  2. PREDNISONE [Suspect]
     Active Substance: PREDNISONE
     Indication: Product used for unknown indication
     Dosage: 5 MG
     Route: 048
  3. PREDNISONE [Suspect]
     Active Substance: PREDNISONE
     Dosage: 5 MG
     Route: 048
  4. ZOLPIDEM TARTRATE [Suspect]
     Active Substance: ZOLPIDEM TARTRATE
     Indication: Sleep disorder
     Route: 048
  5. FOLIC ACID\IRON POLYMALTOSE [Suspect]
     Active Substance: FOLIC ACID\IRON POLYMALTOSE
     Indication: Product used for unknown indication
     Route: 048
  6. CHOLINE\INOSITOL\VITAMINS [Suspect]
     Active Substance: CHOLINE\INOSITOL\VITAMINS
     Indication: Blood cholesterol
     Dosage: AT NIGHT
     Route: 048
  7. CINNARIZINE [Suspect]
     Active Substance: CINNARIZINE
     Indication: Nausea
     Route: 048
  8. SESAME OIL [Suspect]
     Active Substance: SESAME OIL
     Indication: Product used for unknown indication
     Dosage: APPLY TO THE AFFECTED AREAS THREE TIMES A DAY
     Route: 061
  9. HYDROCHLOROTHIAZIDE\VALSARTAN [Suspect]
     Active Substance: HYDROCHLOROTHIAZIDE\VALSARTAN
     Indication: Hypertension
     Route: 048
  10. ECOTRIN [Suspect]
     Active Substance: ASPIRIN
     Indication: Anticoagulant therapy
     Route: 048
  11. RIVAROXABAN [Suspect]
     Active Substance: RIVAROXABAN
     Indication: Anticoagulant therapy
     Route: 048
  12. FOLIC ACID [Suspect]
     Active Substance: FOLIC ACID
     Indication: Coronary artery disease
     Route: 048

REACTIONS (3)
  - Dyspnoea [Unknown]
  - Hypoacusis [Unknown]
  - Memory impairment [Unknown]
